FAERS Safety Report 5377955-4 (Version None)
Quarter: 2007Q3

REPORT INFORMATION
  Report Type: 
  Country: None (occurrence: None)
  Receive Date: 20070703
  Receipt Date: 20070625
  Transmission Date: 20080115
  Serious: Yes (Hospitalization, Congenital Anomaly)
  Sender: FDA-Public Use
  Company Number: FR-ABBOTT-07P-056-0371260-00

PATIENT
  Sex: Female

DRUGS (2)
  1. DEPAKENE [Suspect]
     Indication: DRUG EXPOSURE DURING PREGNANCY
     Route: 064
  2. CLOBAZAM [Suspect]
     Indication: DRUG EXPOSURE DURING PREGNANCY
     Route: 064

REACTIONS (12)
  - COAGULATION DISORDER NEONATAL [None]
  - CONGENITAL CENTRAL NERVOUS SYSTEM ANOMALY [None]
  - CONGENITAL JAW MALFORMATION [None]
  - DYSMORPHISM [None]
  - EAR MALFORMATION [None]
  - FOETAL GROWTH RETARDATION [None]
  - HAEMODYNAMIC TEST ABNORMAL [None]
  - HIGH ARCHED PALATE [None]
  - INFANTILE APNOEIC ATTACK [None]
  - NEONATAL INFECTION [None]
  - NEONATAL RESPIRATORY DISTRESS SYNDROME [None]
  - SOMNOLENCE [None]
